FAERS Safety Report 9304806 (Version 1)
Quarter: 2013Q2

REPORT INFORMATION
  Report Type: Spontaneous
  Country: GB (occurrence: None)
  Receive Date: 20130521
  Receipt Date: 20130521
  Transmission Date: 20140414
  Serious: Yes (Life-Threatening, Hospitalization)
  Sender: FDA-Public Use
  Company Number: GER/UKI/13/0029606

PATIENT
  Age: 63 Year
  Sex: Female

DRUGS (6)
  1. SERTRALINE (SERTRALINE) (SERTRALINE) [Suspect]
     Indication: PRODUCT USED FOR UNKNOWN INDICATION
     Dates: start: 20130424
  2. ASPIRIN(ACETYLSALICYLIC ACID) [Concomitant]
  3. ATENOLOL(ATENOLOL) [Concomitant]
  4. OMEPRAZOLE(OMEPRAZOLE) [Concomitant]
  5. RAMIPRIL(RAMIPRIL) [Concomitant]
  6. SIMVASTATIN(SIMVASTATIN) [Concomitant]

REACTIONS (2)
  - Suicide attempt [None]
  - Overdose [None]
